FAERS Safety Report 8883419 (Version 1)
Quarter: 2012Q4

REPORT INFORMATION
  Report Type: 
  Country: US (occurrence: US)
  Receive Date: 20121102
  Receipt Date: 20121102
  Transmission Date: 20130627
  Serious: Yes (Other)
  Sender: FDA-Public Use
  Company Number: US-B.I. PHARMACEUTICALS,INC./RIDGEFIELD-2012-EU-05477GD

PATIENT
  Age: 35 Year
  Sex: Female

DRUGS (8)
  1. RANITIDINE [Suspect]
  2. DIAZEPAM [Suspect]
  3. BUPROPION [Suspect]
  4. BENZTROPINE [Suspect]
  5. LOXAPINE [Suspect]
  6. DIPHENHYDRAMINE [Suspect]
  7. TORADOL [Suspect]
  8. FLUMAZENIL [Suspect]
     Indication: TOXICITY TO VARIOUS AGENTS

REACTIONS (3)
  - Convulsion [Unknown]
  - Toxicity to various agents [Unknown]
  - Unresponsive to stimuli [Unknown]
